FAERS Safety Report 5338650-0 (Version None)
Quarter: 2007Q2

REPORT INFORMATION
  Report Type: 
  Country: None (occurrence: None)
  Receive Date: 20070530
  Receipt Date: 20070523
  Transmission Date: 20071010
  Serious: Yes (Death)
  Sender: FDA-Public Use
  Company Number: JP-MERCK-0705USA00110

PATIENT
  Age: 92 Year
  Sex: Male

DRUGS (2)
  1. STROMECTOL [Suspect]
     Indication: ACARODERMATITIS
     Route: 048
  2. MAGNESIUM SULFATE [Concomitant]
     Route: 048

REACTIONS (1)
  - MARASMUS [None]
